FAERS Safety Report 4836262-6 (Version None)
Quarter: 2005Q4

REPORT INFORMATION
  Report Type: 
  Country: None (occurrence: None)
  Receive Date: 20051118
  Receipt Date: 20051111
  Transmission Date: 20060501
  Serious: Yes (Other)
  Sender: FDA-Public Use
  Company Number: MC200501027

PATIENT

DRUGS (1)
  1. ANGIOMAX [Suspect]
     Dosage: SEE IMAGE
     Route: 042
     Dates: start: 20020101, end: 20040101

REACTIONS (2)
  - EMBOLIC STROKE [None]
  - POST PROCEDURAL COMPLICATION [None]
